FAERS Safety Report 7016003-7 (Version None)
Quarter: 2010Q3

REPORT INFORMATION
  Report Type: 
  Country: None (occurrence: None)
  Receive Date: 20100927
  Receipt Date: 20100917
  Transmission Date: 20110219
  Serious: Yes (Hospitalization)
  Sender: FDA-Public Use
  Company Number: FR-JNJFOC-20080303065

PATIENT
  Sex: Female
  Weight: 63 kg

DRUGS (8)
  1. PALIPERIDONE [Suspect]
     Indication: SCHIZOPHRENIA
  2. PRAZEPAM [Concomitant]
     Indication: ANXIETY
     Route: 048
  3. EFFEXOR [Concomitant]
     Indication: DEPRESSION
     Route: 048
  4. DIOSMIL [Concomitant]
     Indication: VENOUS INSUFFICIENCY
     Route: 048
  5. CERAZETTE [Concomitant]
     Indication: CONTRACEPTION
     Route: 048
  6. LEVOTHYROXINE SODIUM [Concomitant]
     Indication: HYPOTHYROIDISM
     Route: 048
  7. LEVOTHYROXINE SODIUM [Concomitant]
     Route: 048
  8. THIOCOLCHICOSIDE [Concomitant]
     Indication: MUSCLE CONTRACTURE
     Route: 048

REACTIONS (2)
  - HYPOTHYROIDISM [None]
  - PSYCHOTIC DISORDER [None]
